FAERS Safety Report 26118172 (Version 2)
Quarter: 2025Q4

REPORT INFORMATION
  Report Type: Spontaneous
  Country: US (occurrence: US)
  Receive Date: 20251203
  Receipt Date: 20251222
  Transmission Date: 20260118
  Serious: No
  Sender: MYLAN
  Company Number: US-MYLANLABS-2025M1101009

PATIENT
  Age: 47 Year
  Sex: Female
  Weight: 80.73 kg

DRUGS (1)
  1. ESTRADIOL TRANSDERMAL SYSTEM [Suspect]
     Active Substance: ESTRADIOL
     Indication: Menopausal symptoms
     Dosage: 0.1 MILLIGRAM, QD (PER DAY, ONCE WEEKLY)
     Dates: start: 20251108, end: 20251122

REACTIONS (4)
  - Application site rash [Not Recovered/Not Resolved]
  - Skin erosion [Not Recovered/Not Resolved]
  - Application site irritation [Not Recovered/Not Resolved]
  - Product adhesion issue [Unknown]

NARRATIVE: CASE EVENT DATE: 20251109
